FAERS Safety Report 6383193-9 (Version None)
Quarter: 2009Q3

REPORT INFORMATION
  Report Type: 
  Country: None (occurrence: None)
  Receive Date: 20090929
  Receipt Date: 20090921
  Transmission Date: 20100115
  Serious: Yes (Hospitalization)
  Sender: FDA-Public Use
  Company Number: 20097442

PATIENT
  Sex: Female

DRUGS (2)
  1. LIORESAL [Suspect]
     Indication: MUSCLE SPASTICITY
     Dosage: UNK MCG, DAILY, INTRATHECAL
     Route: 037
  2. DANTRIUM [Concomitant]

REACTIONS (11)
  - AGITATION [None]
  - ASPIRATION [None]
  - CATHETER RELATED COMPLICATION [None]
  - COLLAPSE OF LUNG [None]
  - DRUG WITHDRAWAL SYNDROME [None]
  - FEELING COLD [None]
  - PAIN [None]
  - PRURITUS [None]
  - STAPHYLOCOCCAL INFECTION [None]
  - TREMOR [None]
  - VOMITING [None]
